FAERS Safety Report 9232083 (Version 3)
Quarter: 2013Q4

REPORT INFORMATION
  Report Type: Spontaneous
  Country: US (occurrence: US)
  Receive Date: 20130415
  Receipt Date: 20131112
  Transmission Date: 20140711
  Serious: No
  Sender: FDA-Public Use
  Company Number: US-PFIZER INC-2013115886

PATIENT
  Age: 65 Year
  Sex: Male

DRUGS (24)
  1. SUTENT [Suspect]
     Indication: RENAL CANCER
     Dosage: 50 MG, UNK
     Dates: start: 20130325
  2. ACTIGALL [Concomitant]
     Dosage: UNK
  3. ALLOPURINOL [Concomitant]
     Dosage: UNK
  4. CHROMIUM PICOLINATE [Concomitant]
     Dosage: UNK
  5. COLACE [Concomitant]
     Dosage: UNK
  6. FENTANYL [Concomitant]
     Dosage: UNK
  7. GABAPENTIN [Concomitant]
     Dosage: UNK
  8. ACTONEL [Concomitant]
     Dosage: UNK
  9. ASPIRIN [Concomitant]
     Dosage: UNK
  10. GLIPIZIDE [Concomitant]
     Dosage: UNK
  11. LASIX [Concomitant]
     Dosage: UNK
  12. MECLIZINE HYDROCHLORIDE [Concomitant]
     Dosage: UNK
  13. NEXIUM [Concomitant]
     Dosage: UNK
  14. NOVOLOG [Concomitant]
     Dosage: UNK
  15. OMEGA 3 [Concomitant]
     Dosage: UNK
  16. PROMETHAZINE HYDROCHLORIDE [Concomitant]
     Dosage: UNK
  17. REGLAN [Concomitant]
     Dosage: UNK
  18. TOPROL XL [Concomitant]
     Dosage: UNK
  19. TOVIAZ [Concomitant]
     Dosage: UNK
  20. VICODIN [Concomitant]
     Dosage: UNK
  21. VITAMIN D [Concomitant]
     Dosage: UNK
  22. LEVEMIR [Concomitant]
  23. LIPITOR [Concomitant]
  24. MULTIVITAMINS [Concomitant]

REACTIONS (4)
  - Hearing impaired [Unknown]
  - Stomatitis [Unknown]
  - Abdominal pain upper [Unknown]
  - Vomiting [Unknown]
